FAERS Safety Report 19578170 (Version 1)
Quarter: 2021Q3

REPORT INFORMATION
  Report Type: Report from Study
  Country: KE (occurrence: KE)
  Receive Date: 20210719
  Receipt Date: 20210719
  Transmission Date: 20211014
  Serious: Yes (Death)
  Sender: FDA-Public Use
  Company Number: KE-PFIZER INC-2021880541

PATIENT
  Age: 20 Year
  Sex: Male

DRUGS (1)
  1. SUTENT [Suspect]
     Active Substance: SUNITINIB MALATE
     Indication: RENAL CELL CARCINOMA
     Dosage: 50 MG(1X50MG CAPSULE)

REACTIONS (1)
  - Death [Fatal]

NARRATIVE: CASE EVENT DATE: 20210607
